FAERS Safety Report 5945674-9 (Version None)
Quarter: 2008Q4

REPORT INFORMATION
  Report Type: 
  Country: None (occurrence: None)
  Receive Date: 20081107
  Receipt Date: 20081031
  Transmission Date: 20090506
  Serious: Yes (Disabling, Other)
  Sender: FDA-Public Use
  Company Number: US-PFIZER INC-2008092456

PATIENT
  Sex: Female
  Weight: 55.454 kg

DRUGS (3)
  1. VIRACEPT [Suspect]
     Indication: HIV TEST POSITIVE
     Dates: start: 19980101
  2. LIPITOR [Suspect]
     Indication: BLOOD CHOLESTEROL INCREASED
  3. COMBIVIR [Suspect]
     Indication: HIV TEST POSITIVE

REACTIONS (4)
  - ABASIA [None]
  - BONE PAIN [None]
  - FATIGUE [None]
  - OSTEOPOROSIS [None]
